FAERS Safety Report 5783502-5 (Version None)
Quarter: 2008Q2

REPORT INFORMATION
  Report Type: 
  Country: None (occurrence: None)
  Receive Date: 20080605
  Receipt Date: 20080318
  Transmission Date: 20081010
  Serious: No
  Sender: FDA-Public Use
  Company Number: A0716138A

PATIENT
  Age: 62 Year
  Sex: Female

DRUGS (4)
  1. ALLI [Suspect]
     Route: 048
     Dates: start: 20080310
  2. ONE-A-DAY [Concomitant]
     Dates: end: 20080311
  3. CENTRUM SILVER [Concomitant]
     Dates: start: 20080312
  4. VICODIN [Concomitant]

REACTIONS (7)
  - ABNORMAL FAECES [None]
  - CONSTIPATION [None]
  - DYSPEPSIA [None]
  - FAECAL INCONTINENCE [None]
  - FAECES HARD [None]
  - INFREQUENT BOWEL MOVEMENTS [None]
  - WEIGHT INCREASED [None]
